FAERS Safety Report 18222344 (Version 2)
Quarter: 2020Q3

REPORT INFORMATION
  Report Type: Spontaneous
  Country: US (occurrence: US)
  Receive Date: 20200902
  Receipt Date: 20200908
  Transmission Date: 20201103
  Serious: No
  Sender: FDA-Public Use
  Company Number: US-ELI_LILLY_AND_COMPANY-US202008010399

PATIENT
  Sex: Female

DRUGS (7)
  1. HUMULIN R U?500 [Suspect]
     Active Substance: INSULIN HUMAN
     Indication: DIABETES MELLITUS
     Dosage: 100 U, BID
     Route: 058
  2. OZEMPIC [Concomitant]
     Active Substance: SEMAGLUTIDE
     Indication: DIABETES MELLITUS
     Dosage: UNK UNK, WEEKLY (1/W)
     Route: 065
  3. HUMULIN R U?500 [Suspect]
     Active Substance: INSULIN HUMAN
     Dosage: 65 U, EACH MORNING
     Route: 058
  4. LANTUS [Concomitant]
     Active Substance: INSULIN GLARGINE
     Indication: DIABETES MELLITUS
     Dosage: 80 U, DAILY(AT NIGHT)
     Route: 065
  5. HUMALOG [Suspect]
     Active Substance: INSULIN LISPRO
     Indication: DIABETES MELLITUS
     Dosage: 75 U, BID
     Route: 058
  6. HUMULIN R U?500 [Suspect]
     Active Substance: INSULIN HUMAN
     Dosage: 50 U, EACH EVENING(DAILY)
     Route: 058
  7. NOVOLOG [Suspect]
     Active Substance: INSULIN ASPART
     Indication: DIABETES MELLITUS
     Dosage: UNK UNK, UNKNOWN
     Route: 065

REACTIONS (9)
  - Cataract [Recovering/Resolving]
  - Diabetic retinopathy [Recovering/Resolving]
  - Abdominal discomfort [Unknown]
  - Injection site bruising [Recovering/Resolving]
  - Blood glucose decreased [Recovering/Resolving]
  - Drug ineffective [Recovering/Resolving]
  - Nephropathy [Recovering/Resolving]
  - Injection site mass [Recovering/Resolving]
  - Injection site infection [Recovering/Resolving]
